FAERS Safety Report 6574823-7 (Version None)
Quarter: 2010Q1

REPORT INFORMATION
  Report Type: 
  Country: None (occurrence: None)
  Receive Date: 20100209
  Receipt Date: 20100202
  Transmission Date: 20100710
  Serious: Yes (Life-Threatening, Other)
  Sender: FDA-Public Use
  Company Number: PHHY2010ZA05663

PATIENT
  Age: 72 Year
  Sex: Male

DRUGS (7)
  1. DIOVAN HCT [Suspect]
     Dosage: UNK
     Route: 048
     Dates: end: 20100131
  2. IMDUR [Concomitant]
     Dosage: UNK
  3. CARLOC [Concomitant]
     Dosage: UNK
  4. ESCITALOPRAM [Concomitant]
     Dosage: UNK
  5. TRAMADOL [Concomitant]
  6. WELLBUTRIN [Concomitant]
  7. DRUG THERAPY NOS [Concomitant]
     Indication: PAIN
     Dosage: 9 TABLETS PER DAY

REACTIONS (24)
  - ABNORMAL FAECES [None]
  - ANXIETY [None]
  - APPARENT DEATH [None]
  - BLOOD PRESSURE INADEQUATELY CONTROLLED [None]
  - COUGH [None]
  - DECREASED APPETITE [None]
  - DISORIENTATION [None]
  - DIZZINESS [None]
  - DRY SKIN [None]
  - DYSKINESIA [None]
  - ELECTROLYTE IMBALANCE [None]
  - FATIGUE [None]
  - FEELING ABNORMAL [None]
  - LISTLESS [None]
  - NAUSEA [None]
  - PIGMENTATION DISORDER [None]
  - POLLAKIURIA [None]
  - SENILE DEMENTIA [None]
  - SINUS DISORDER [None]
  - SKIN EXFOLIATION [None]
  - SOCIAL AVOIDANT BEHAVIOUR [None]
  - THIRST [None]
  - UPPER RESPIRATORY TRACT INFECTION [None]
  - WEIGHT DECREASED [None]
